FAERS Safety Report 11534360 (Version 1)
Quarter: 2015Q3

REPORT INFORMATION
  Report Type: Spontaneous
  Country: US (occurrence: None)
  Receive Date: 20150921
  Receipt Date: 20150921
  Transmission Date: 20151125
  Serious: No
  Sender: FDA-Public Use
  Company Number: None

PATIENT
  Sex: Male

DRUGS (5)
  1. PULMOZYME [Suspect]
     Active Substance: DORNASE ALFA
     Indication: CYSTIC FIBROSIS
     Dosage: 2.5MG QD NEB
     Dates: start: 20130701
  2. AZITHROMYCIN [Concomitant]
     Active Substance: AZITHROMYCIN ANHYDROUS
  3. TOBI [Suspect]
     Active Substance: TOBRAMYCIN
     Dosage: 300MG  BID  NEB
     Dates: start: 20150413
  4. SODIUM CHLORIDE. [Suspect]
     Active Substance: SODIUM CHLORIDE
  5. URSODIOL. [Concomitant]
     Active Substance: URSODIOL

REACTIONS (1)
  - Hospitalisation [None]
